FAERS Safety Report 17968410 (Version 2)
Quarter: 2020Q3

REPORT INFORMATION
  Report Type: Spontaneous
  Country: US (occurrence: US)
  Receive Date: 20200701
  Receipt Date: 20200705
  Transmission Date: 20201103
  Serious: Yes (Hospitalization, Other)
  Sender: FDA-Public Use
  Company Number: US-ABBVIE-20K-163-3458645-00

PATIENT
  Age: 70 Year
  Sex: Female

DRUGS (6)
  1. PREDNISONE. [Concomitant]
     Active Substance: PREDNISONE
     Indication: COLITIS ULCERATIVE
     Dates: start: 20200108, end: 20200113
  2. XELJANZ [Suspect]
     Active Substance: TOFACITINIB CITRATE
     Indication: COLITIS ULCERATIVE
     Route: 048
     Dates: start: 20200221, end: 20200225
  3. HYDROCORTISONE VALERATE. [Concomitant]
     Active Substance: HYDROCORTISONE VALERATE
     Indication: COLITIS ULCERATIVE
     Dosage: 0.2%
     Dates: start: 20200114, end: 20200128
  4. HUMIRA [Suspect]
     Active Substance: ADALIMUMAB
     Indication: COLITIS ULCERATIVE
     Route: 058
  5. VEDOLIZUMAB [Suspect]
     Active Substance: VEDOLIZUMAB
     Indication: PRODUCT USED FOR UNKNOWN INDICATION
     Route: 065
  6. XELJANZ [Suspect]
     Active Substance: TOFACITINIB CITRATE
     Route: 048
     Dates: start: 2020

REACTIONS (12)
  - Fatigue [Unknown]
  - Large intestine infection [Unknown]
  - Hypothyroidism [Unknown]
  - Colitis ulcerative [Unknown]
  - Platelet count increased [Unknown]
  - Peripheral swelling [Unknown]
  - Cholecystectomy [Unknown]
  - Drug ineffective [Unknown]
  - Seborrhoeic dermatitis [Unknown]
  - Normocytic anaemia [Unknown]
  - Drug hypersensitivity [Unknown]
  - Clostridium difficile infection [Recovered/Resolved]

NARRATIVE: CASE EVENT DATE: 2017
